FAERS Safety Report 8275242 (Version 5)
Quarter: 2014Q4

REPORT INFORMATION
  Report Type: Spontaneous
  Country: JP (occurrence: JP)
  Receive Date: 20111205
  Receipt Date: 20141121
  Transmission Date: 20150529
  Serious: Yes (Other)
  Sender: FDA-Public Use
  Company Number: JP-GLAXOSMITHKLINE-B0766576A

PATIENT
  Age: 29 Year
  Sex: Male

DRUGS (5)
  1. LAMOTRIGINE. [Suspect]
     Active Substance: LAMOTRIGINE
     Indication: EPILEPSY
     Route: 048
     Dates: start: 20100121, end: 20111221
  2. BENZALIN [Concomitant]
     Active Substance: NITRAZEPAM
     Indication: EPILEPSY
     Dosage: 10 MG, QD
  3. DEPAKENE [Concomitant]
     Active Substance: VALPROIC ACID
     Indication: EPILEPSY
     Dosage: 200 MG, BID
     Dates: start: 20110708
  4. EPILEO PETIT MAL [Concomitant]
     Indication: EPILEPSY
     Dosage: 600 MG, BID
  5. LAMOTRIGINE. [Suspect]
     Active Substance: LAMOTRIGINE
     Route: 048
     Dates: start: 20111222

REACTIONS (4)
  - Rash [Unknown]
  - Dermatosis [Not Recovered/Not Resolved]
  - Skin disorder [Unknown]
  - Psoriasis [Not Recovered/Not Resolved]

NARRATIVE: CASE EVENT DATE: 20110602
